FAERS Safety Report 9840660 (Version 5)
Quarter: 2014Q2

REPORT INFORMATION
  Report Type: Spontaneous
  Country: US (occurrence: US)
  Receive Date: 20140124
  Receipt Date: 20140410
  Transmission Date: 20141212
  Serious: No
  Sender: FDA-Public Use
  Company Number: US-PFIZER INC-2014021644

PATIENT
  Sex: Female

DRUGS (5)
  1. LYRICA [Suspect]
     Indication: FIBROMYALGIA
     Dosage: UNK
  2. LYRICA [Suspect]
     Dosage: UNK
  3. LYRICA [Suspect]
     Dosage: 600 MG(BY TAKING TWO 300MG), UNK
  4. LYRICA [Suspect]
     Dosage: 225 MG, 2X/DAY
  5. LYRICA [Suspect]
     Dosage: UNK

REACTIONS (6)
  - Malaise [Unknown]
  - Pain [Unknown]
  - Fibromyalgia [Unknown]
  - Influenza [Not Recovered/Not Resolved]
  - Nausea [Unknown]
  - Asthenia [Unknown]
